FAERS Safety Report 17008434 (Version 1)
Quarter: 2019Q4

REPORT INFORMATION
  Report Type: Spontaneous
  Country: AU (occurrence: AU)
  Receive Date: 20191108
  Receipt Date: 20191108
  Transmission Date: 20200122
  Serious: Yes (Hospitalization, Other)
  Sender: FDA-Public Use
  Company Number: AU-SA-2019SA302873

PATIENT
  Age: 37 Year
  Sex: Female

DRUGS (4)
  1. ALEMTUZUMAB [Suspect]
     Active Substance: ALEMTUZUMAB
     Indication: BONE MARROW CONDITIONING REGIMEN
     Dosage: UNK
     Dates: start: 2017, end: 2017
  2. PREDNISONE. [Concomitant]
     Active Substance: PREDNISONE
     Indication: THYROIDITIS ACUTE
     Dosage: 0.5 MG/KG
  3. CYCLOPHOSPHAMIDE. [Concomitant]
     Active Substance: CYCLOPHOSPHAMIDE
     Indication: BONE MARROW CONDITIONING REGIMEN
     Dosage: UNK
     Dates: start: 2017, end: 2017
  4. FLUDARABINE [Concomitant]
     Active Substance: FLUDARABINE PHOSPHATE
     Indication: BONE MARROW CONDITIONING REGIMEN
     Dosage: UNK
     Dates: start: 2017, end: 2017

REACTIONS (7)
  - Evans syndrome [Recovering/Resolving]
  - Immune thrombocytopenic purpura [Recovering/Resolving]
  - Anaemia [Recovering/Resolving]
  - Vaginal haemorrhage [Recovering/Resolving]
  - Gingival bleeding [Recovering/Resolving]
  - Cytopenia [Recovering/Resolving]
  - Haemolysis [Recovering/Resolving]

NARRATIVE: CASE EVENT DATE: 2018
